FAERS Safety Report 5903350-2 (Version None)
Quarter: 2008Q3

REPORT INFORMATION
  Report Type: 
  Country: None (occurrence: None)
  Receive Date: 20080930
  Receipt Date: 20080924
  Transmission Date: 20090109
  Serious: Yes (Hospitalization, Other)
  Sender: FDA-Public Use
  Company Number: BR-BAYER-200815651LA

PATIENT
  Age: 27 Year
  Sex: Female

DRUGS (3)
  1. BETAFERON [Suspect]
     Indication: MULTIPLE SCLEROSIS
     Route: 058
     Dates: start: 20080401, end: 20080101
  2. BETAFERON [Suspect]
     Route: 058
     Dates: start: 20080101, end: 20080101
  3. BETAFERON [Suspect]
     Dosage: UNIT DOSE: 1 ML
     Route: 058
     Dates: start: 20080619

REACTIONS (7)
  - ASTHENIA [None]
  - CENTRAL NERVOUS SYSTEM LESION [None]
  - HEADACHE [None]
  - HYPOAESTHESIA [None]
  - MALAISE [None]
  - PAIN [None]
  - THYROID NEOPLASM [None]
